FAERS Safety Report 4918609-5 (Version None)
Quarter: 2006Q1

REPORT INFORMATION
  Report Type: 
  Country: None (occurrence: None)
  Receive Date: 20060216
  Receipt Date: 20060206
  Transmission Date: 20060701
  Serious: Yes (Hospitalization, Other)
  Sender: FDA-Public Use
  Company Number: 2006018640

PATIENT
  Sex: Male
  Weight: 81.6475 kg

DRUGS (12)
  1. LIPITOR [Suspect]
     Indication: BLOOD CHOLESTEROL INCREASED
     Dosage: 10 MG (10 MG, 1 IN 1 D);
  2. TOPROL-XL [Concomitant]
  3. IMDUR [Concomitant]
  4. NORVASC [Concomitant]
  5. PRILOSEC [Concomitant]
  6. HYTRIN [Concomitant]
  7. ACETYLSALICYLIC ACID SRT [Concomitant]
  8. PLAVIX [Concomitant]
  9. ACETAMINOPHEN [Concomitant]
  10. GLUCOSAMINE [Concomitant]
  11. VITAMINS [Concomitant]
  12. VITAMIN E [Concomitant]

REACTIONS (3)
  - CORONARY ARTERY OCCLUSION [None]
  - PAIN IN EXTREMITY [None]
  - TREATMENT NONCOMPLIANCE [None]
